FAERS Safety Report 19668543 (Version 1)
Quarter: 2021Q3

REPORT INFORMATION
  Report Type: Report from Study
  Country: IT (occurrence: IT)
  Receive Date: 20210806
  Receipt Date: 20210806
  Transmission Date: 20211014
  Serious: Yes (Other)
  Sender: FDA-Public Use
  Company Number: IT-TEVA-2021-IT-1939308

PATIENT
  Age: 44 Year
  Sex: Female

DRUGS (6)
  1. DELTACORTENE 25 MG COMPRESSE [Concomitant]
     Active Substance: PREDNISONE
     Dosage: 2DOSAGEFORM
     Route: 048
     Dates: start: 20210721, end: 20210722
  2. PARACETAMOLO SELLA 500 MG COMPRESSE [Concomitant]
     Dosage: SADDLE:UNIT DOSE:1DOSAGEFORM
     Route: 048
  3. TRIMETON [Concomitant]
     Active Substance: CHLORPHENIRAMINE MALEATE
     Dosage: 1 DOSAGEFORM
  4. TRAZIMERA [Concomitant]
     Active Substance: TRASTUZUMAB-QYYP
     Dosage: 710.4MILLIGRAM
     Route: 042
  5. PACLITAXEL TEVA 6 MG/ML, CONCENTRATO PER SOLUZIONE PER INFUSIONE [Suspect]
     Active Substance: PACLITAXEL
     Indication: TRIPLE POSITIVE BREAST CANCER
     Dosage: 160MILLIGRAM
     Route: 042
     Dates: start: 20210722, end: 20210722
  6. DEXAMETHASONE SODIUM PHOSPHATE. [Concomitant]
     Active Substance: DEXAMETHASONE SODIUM PHOSPHATE
     Dosage: 10MILLIGRAM

REACTIONS (3)
  - Abdominal pain lower [Recovered/Resolved]
  - Feeling hot [Recovered/Resolved]
  - Dyspnoea [Recovered/Resolved]

NARRATIVE: CASE EVENT DATE: 20210722
